FAERS Safety Report 4614213-7 (Version None)
Quarter: 2005Q1

REPORT INFORMATION
  Report Type: 
  Country: None (occurrence: None)
  Receive Date: 20050315
  Receipt Date: 20050225
  Transmission Date: 20050727
  Serious: Yes (Hospitalization, Other)
  Sender: FDA-Public Use
  Company Number: USA041286549

PATIENT
  Age: 76 Year
  Sex: Female
  Weight: 61 kg

DRUGS (5)
  1. HUMULIN N [Suspect]
     Indication: DIABETES MELLITUS INSULIN-DEPENDENT
  2. HUMULIN R [Suspect]
     Indication: DIABETES MELLITUS INSULIN-DEPENDENT
  3. HUMALOG [Suspect]
     Indication: DIABETES MELLITUS
     Dates: start: 20000101
  4. TAMOXIFEN CITRATE [Concomitant]
  5. LANTUS [Concomitant]

REACTIONS (14)
  - BLOOD GLUCOSE FLUCTUATION [None]
  - BREAST CANCER [None]
  - CORONARY ARTERY DISEASE [None]
  - EUPHORIC MOOD [None]
  - FATIGUE [None]
  - FEAR [None]
  - FEELING ABNORMAL [None]
  - FEELING COLD [None]
  - FEELING JITTERY [None]
  - HYPERHIDROSIS [None]
  - MEMORY IMPAIRMENT [None]
  - NAUSEA [None]
  - PHARMACEUTICAL PRODUCT COMPLAINT [None]
  - SYNCOPE [None]
